FAERS Safety Report 19645245 (Version 1)
Quarter: 2021Q3

REPORT INFORMATION
  Report Type: Spontaneous
  Country: GB (occurrence: GB)
  Receive Date: 20210802
  Receipt Date: 20210802
  Transmission Date: 20211014
  Serious: No
  Sender: FDA-Public Use
  Company Number: GB-ALKEM LABORATORIES LIMITED-GB-ALKEM-2020-04077

PATIENT
  Sex: Male
  Weight: 82 kg

DRUGS (1)
  1. CEFUROXIME AXETIL. [Suspect]
     Active Substance: CEFUROXIME AXETIL
     Indication: BRONCHITIS
     Dosage: 1 DOSAGE FORM, EVERY
     Route: 065
     Dates: start: 20180518, end: 20180523

REACTIONS (1)
  - Sciatic nerve neuropathy [Recovered/Resolved]

NARRATIVE: CASE EVENT DATE: 20180518
